FAERS Safety Report 22218117 (Version 2)
Quarter: 2023Q2

REPORT INFORMATION
  Report Type: Report from Study
  Country: US (occurrence: None)
  Receive Date: 20230417
  Receipt Date: 20230426
  Transmission Date: 20230722
  Serious: Yes (Hospitalization)
  Sender: FDA-Public Use
  Company Number: US-ROCHE-3324720

PATIENT
  Age: 62 Year
  Sex: Female
  Weight: 51 kg

DRUGS (16)
  1. RANIBIZUMAB [Suspect]
     Active Substance: RANIBIZUMAB
     Indication: Diabetic retinopathy
     Dosage: DOSE OF STUDY DRUG FIRST ADMINISTERED 10 MG/ML, Q36W
     Route: 050
     Dates: start: 20210921
  2. RANIBIZUMAB [Suspect]
     Active Substance: RANIBIZUMAB
  3. RANIBIZUMAB [Suspect]
     Active Substance: RANIBIZUMAB
  4. RANIBIZUMAB [Suspect]
     Active Substance: RANIBIZUMAB
  5. RANIBIZUMAB [Suspect]
     Active Substance: RANIBIZUMAB
  6. RANIBIZUMAB [Suspect]
     Active Substance: RANIBIZUMAB
  7. RANIBIZUMAB [Concomitant]
     Active Substance: RANIBIZUMAB
     Dosage: FELLOW EYE, DOSE OF STUDY DRUG FIRST ADMINISTERED 6 MG/ML
     Route: 050
     Dates: start: 20210921
  8. HYDROCODONE [Concomitant]
     Active Substance: HYDROCODONE
     Indication: Arthritis
     Route: 048
     Dates: start: 2011
  9. HYDROCODONE [Concomitant]
     Active Substance: HYDROCODONE
     Indication: Pain
  10. LISINOPRIL [Concomitant]
     Active Substance: LISINOPRIL
     Indication: Hypertension
     Route: 048
     Dates: start: 2011
  11. FUROSEMIDE [Concomitant]
     Active Substance: FUROSEMIDE
     Indication: Oedema
     Route: 048
     Dates: start: 2011
  12. DILTIAZEM HYDROCHLORIDE [Concomitant]
     Active Substance: DILTIAZEM HYDROCHLORIDE
     Indication: Hypertension
     Route: 048
     Dates: start: 2011
  13. NOVOLOG [Concomitant]
     Active Substance: INSULIN ASPART
     Indication: Diabetes mellitus
     Route: 058
     Dates: start: 2011
  14. TRULICITY [Concomitant]
     Active Substance: DULAGLUTIDE
     Indication: Diabetes mellitus
     Route: 058
     Dates: start: 202108
  15. PROAIR HFA [Concomitant]
     Active Substance: ALBUTEROL SULFATE
     Indication: Asthma
     Route: 055
     Dates: start: 2011
  16. ZYLET [Concomitant]
     Active Substance: LOTEPREDNOL ETABONATE\TOBRAMYCIN
     Dates: start: 20230307, end: 20230310

REACTIONS (1)
  - Hypertension [Not Recovered/Not Resolved]

NARRATIVE: CASE EVENT DATE: 20230402
